FAERS Safety Report 14090977 (Version 1)
Quarter: 2017Q4

REPORT INFORMATION
  Report Type: Spontaneous
  Country: US (occurrence: US)
  Receive Date: 20171016
  Receipt Date: 20171016
  Transmission Date: 20180321
  Serious: No
  Sender: FDA-Public Use
  Company Number: US-ENDO PHARMACEUTICALS INC-2017-000743

PATIENT
  Sex: Female

DRUGS (3)
  1. CHOLESTYRAMINE. [Suspect]
     Active Substance: CHOLESTYRAMINE
     Indication: BOWEL MOVEMENT IRREGULARITY
     Dosage: 1 DF, DAILY
     Route: 065
     Dates: start: 201603
  2. CHOLESTYRAMINE. [Suspect]
     Active Substance: CHOLESTYRAMINE
     Dosage: UNK UNK, UNKNOWN
     Route: 065
     Dates: start: 20161221
  3. CHOLESTYRAMINE. [Suspect]
     Active Substance: CHOLESTYRAMINE
     Dosage: UNK UNKNOWN, UNKNOWN
     Route: 065
     Dates: start: 20170208

REACTIONS (4)
  - Off label use [Unknown]
  - Product taste abnormal [Unknown]
  - Product solubility abnormal [Unknown]
  - Drug ineffective for unapproved indication [Unknown]
